FAERS Safety Report 13253668 (Version 3)
Quarter: 2017Q1

REPORT INFORMATION
  Report Type: Spontaneous
  Country: GB (occurrence: GB)
  Receive Date: 20170220
  Receipt Date: 20170329
  Transmission Date: 20170428
  Serious: Yes (Hospitalization, Other)
  Sender: FDA-Public Use
  Company Number: GB-009507513-1702GBR008688

PATIENT
  Age: 72 Year
  Sex: Male

DRUGS (17)
  1. DEXAMETHASONE. [Suspect]
     Active Substance: DEXAMETHASONE
     Dosage: UNK
     Route: 065
     Dates: start: 20170111
  2. OMEPRAZOLE. [Concomitant]
     Active Substance: OMEPRAZOLE
     Indication: PRODUCT USED FOR UNKNOWN INDICATION
     Dosage: 20 MG,1 IN 1 D
     Route: 048
  3. DARATUMUMAB [Suspect]
     Active Substance: DARATUMUMAB
     Indication: PLASMA CELL MYELOMA
     Dosage: UNKNOWN (1440 MG)
     Route: 041
     Dates: start: 20151215
  4. DARATUMUMAB [Suspect]
     Active Substance: DARATUMUMAB
     Dosage: UNK
     Route: 065
     Dates: start: 20170110
  5. TAMSULOSIN HYDROCHLORIDE. [Concomitant]
     Active Substance: TAMSULOSIN HYDROCHLORIDE
     Indication: PRODUCT USED FOR UNKNOWN INDICATION
     Dosage: 400 MCG (400 MCG, 1 IN 1 D)
     Route: 048
  6. ZOLEDRONIC ACID [Concomitant]
     Active Substance: ZOLEDRONIC ACID
     Dosage: 0.1 GRAM (3 GM, 1 IN 1 M)
     Route: 065
     Dates: start: 20161026
  7. REVLIMID [Suspect]
     Active Substance: LENALIDOMIDE
     Indication: PLASMA CELL MYELOMA
     Dosage: 25MG ON DAYS 1-21 EACH 28 DAY CYCLE (25MG, 21 IN 28 D)
     Route: 048
     Dates: start: 20151215
  8. REVLIMID [Suspect]
     Active Substance: LENALIDOMIDE
     Dosage: UNK
     Route: 065
     Dates: start: 20170110
  9. ACYCLOVIR. [Concomitant]
     Active Substance: ACYCLOVIR
     Indication: INFECTION PROPHYLAXIS
     Dosage: 1 DF, QM
     Route: 048
  10. SODIUM PHOSPHATE, DIBASIC [Concomitant]
     Active Substance: SODIUM PHOSPHATE, DIBASIC
     Indication: PRODUCT USED FOR UNKNOWN INDICATION
     Dosage: 32 MILLIMOL (16 MILLIMOL, 2 IN 1 D)
     Route: 048
  11. DEXAMETHASONE. [Suspect]
     Active Substance: DEXAMETHASONE
     Indication: PLASMA CELL MYELOMA
     Dosage: 40 MG, 4 IN 1 M
     Route: 048
     Dates: start: 20151215
  12. ZOLEDRONIC ACID [Concomitant]
     Active Substance: ZOLEDRONIC ACID
     Indication: PROPHYLAXIS
     Dosage: 0.1333 GM (4 GM, 1 IN 1 M)
     Route: 065
     Dates: start: 201512
  13. ASPIRIN. [Concomitant]
     Active Substance: ASPIRIN
     Indication: PRODUCT USED FOR UNKNOWN INDICATION
     Dosage: 75 MG,1 IN 1 D
     Route: 048
  14. ACETAMINOPHEN. [Concomitant]
     Active Substance: ACETAMINOPHEN
     Indication: PRODUCT USED FOR UNKNOWN INDICATION
     Dosage: UNK
     Route: 065
  15. LEKOVIT CA [Concomitant]
     Active Substance: CALCIUM CARBONATE\CHOLECALCIFEROL
     Indication: PRODUCT USED FOR UNKNOWN INDICATION
     Dosage: UNK
     Route: 065
  16. CALCEOS [Concomitant]
     Active Substance: CALCIUM CARBONATE\CHOLECALCIFEROL
     Indication: PRODUCT USED FOR UNKNOWN INDICATION
     Dosage: UNKNOWN, 1 IN 1 D
     Route: 048
  17. DUTASTERIDE. [Concomitant]
     Active Substance: DUTASTERIDE
     Indication: PRODUCT USED FOR UNKNOWN INDICATION
     Dosage: 500 MCG, 1 IN 1 D
     Route: 048

REACTIONS (1)
  - Lower respiratory tract infection [Recovered/Resolved]

NARRATIVE: CASE EVENT DATE: 20170118
